FAERS Safety Report 19005220 (Version 1)
Quarter: 2021Q1

REPORT INFORMATION
  Report Type: Spontaneous
  Country: US (occurrence: US)
  Receive Date: 20210313
  Receipt Date: 20210313
  Transmission Date: 20210420
  Serious: Yes (Hospitalization)
  Sender: FDA-Public Use
  Company Number: NVSC2021US052834

PATIENT
  Sex: Male

DRUGS (2)
  1. MEKINIST [Suspect]
     Active Substance: TRAMETINIB DIMETHYL SULFOXIDE
     Indication: HYPERTROPHIC CARDIOMYOPATHY
  2. MEKINIST [Suspect]
     Active Substance: TRAMETINIB DIMETHYL SULFOXIDE
     Indication: HEART DISEASE CONGENITAL
     Dosage: UNK (HALF TABLET IN 5 ML WATER VIA G TUBE)
     Route: 065
     Dates: start: 20200701

REACTIONS (1)
  - Pyrexia [Unknown]
